FAERS Safety Report 14362636 (Version 1)
Quarter: 2018Q1

REPORT INFORMATION
  Report Type: Spontaneous
  Country: US (occurrence: US)
  Receive Date: 20180105
  Receipt Date: 20180105
  Transmission Date: 20180509
  Serious: No
  Sender: FDA-Public Use
  Company Number: None

PATIENT
  Sex: Female

DRUGS (2)
  1. MYRBETRIQ [Suspect]
     Active Substance: MIRABEGRON
     Indication: HYPERTONIC BLADDER
     Dosage: ?          QUANTITY:1 TABLET(S);?
     Route: 048
     Dates: start: 20171223, end: 20180103
  2. MULTIVITAMIN [Concomitant]
     Active Substance: VITAMINS

REACTIONS (8)
  - Urinary tract infection [None]
  - Headache [None]
  - Fatigue [None]
  - Respiratory tract congestion [None]
  - Abdominal distension [None]
  - General symptom [None]
  - Nasopharyngitis [None]
  - Arthralgia [None]

NARRATIVE: CASE EVENT DATE: 20180103
